FAERS Safety Report 6800711-4 (Version None)
Quarter: 2010Q2

REPORT INFORMATION
  Report Type: 
  Country: None (occurrence: None)
  Receive Date: 20100629
  Receipt Date: 20100311
  Transmission Date: 20101027
  Serious: Yes (Other)
  Sender: FDA-Public Use
  Company Number: US-ASTRAZENECA-2008UW01049

PATIENT
  Age: 19817 Day
  Sex: Male

DRUGS (3)
  1. SEROQUEL [Suspect]
     Indication: BIPOLAR DISORDER
     Dosage: 100 MG AND 300 MG
     Route: 048
     Dates: start: 20020101, end: 20060401
  2. SEROQUEL [Suspect]
     Dosage: 50 MG-200 MG
     Route: 048
     Dates: start: 20020131
  3. CARBAMAZEPINE [Concomitant]
     Dosage: 200 MG TAKE ONE TABLET BY MOUTH TWICE A DAY FOR 7 DAYS, THEN TAKE TWO TABLETS TWICE A DAY
     Route: 048
     Dates: start: 20020215, end: 20030216

REACTIONS (8)
  - DIABETES INSIPIDUS [None]
  - DIABETES MELLITUS [None]
  - DIABETIC RETINOPATHY [None]
  - ERECTILE DYSFUNCTION [None]
  - RENAL FAILURE [None]
  - RENAL FAILURE CHRONIC [None]
  - TUBULOINTERSTITIAL NEPHRITIS [None]
  - WEIGHT INCREASED [None]
